FAERS Safety Report 12359229 (Version 1)
Quarter: 2016Q2

REPORT INFORMATION
  Report Type: Spontaneous
  Country: US (occurrence: None)
  Receive Date: 20160511
  Receipt Date: 20160511
  Transmission Date: 20160815
  Serious: Yes (Hospitalization)
  Sender: FDA-Public Use
  Company Number: None

PATIENT
  Age: 6 Year
  Sex: Male

DRUGS (1)
  1. ERWINIA ASPARAGINASE [Suspect]
     Active Substance: ASPARAGINASE ERWINIA CHRYSANTHEMI
     Dates: end: 20160408

REACTIONS (5)
  - Loss of consciousness [None]
  - Sinusitis [None]
  - Photophobia [None]
  - Neutropenia [None]
  - Heart rate increased [None]

NARRATIVE: CASE EVENT DATE: 20160408
